FAERS Safety Report 11125656 (Version 1)
Quarter: 2015Q2

REPORT INFORMATION
  Report Type: Report from Study
  Country: US (occurrence: US)
  Receive Date: 20150520
  Receipt Date: 20150520
  Transmission Date: 20150821
  Serious: Yes (Other)
  Sender: FDA-Public Use
  Company Number: US-SA-2014SA140344

PATIENT
  Age: 43 Year
  Sex: Male

DRUGS (2)
  1. HERBAL EXTRACT NOS [Concomitant]
     Active Substance: HERBALS
     Indication: RENAL DISORDER
  2. AUBAGIO [Suspect]
     Active Substance: TERIFLUNOMIDE
     Indication: MULTIPLE SCLEROSIS
     Route: 048
     Dates: start: 20140922

REACTIONS (12)
  - Rash erythematous [Unknown]
  - Rash [Not Recovered/Not Resolved]
  - Pruritus [Unknown]
  - Haemorrhage subcutaneous [Unknown]
  - Vertigo [Unknown]
  - Abdominal discomfort [Not Recovered/Not Resolved]
  - Body tinea [Unknown]
  - Skin burning sensation [Unknown]
  - Influenza [Unknown]
  - Sinusitis [Unknown]
  - Dizziness [Unknown]
  - Alopecia [Unknown]

NARRATIVE: CASE EVENT DATE: 2014
